FAERS Safety Report 23156692 (Version 1)
Quarter: 2023Q4

REPORT INFORMATION
  Report Type: Spontaneous
  Country: KR (occurrence: KR)
  Receive Date: 20231107
  Receipt Date: 20231107
  Transmission Date: 20240109
  Serious: No
  Sender: FDA-Public Use
  Company Number: KR-SCALL-2023-APC-005964

PATIENT
  Sex: Male

DRUGS (5)
  1. DUTASTERIDE [Suspect]
     Active Substance: DUTASTERIDE
     Indication: Alopecia
     Dosage: 1 DF, QD
     Route: 065
     Dates: start: 202209, end: 2022
  2. KRILL OIL [Concomitant]
     Active Substance: DIETARY SUPPLEMENT\KRILL OIL
     Route: 065
  3. COQ-10 (Ubidecarenone) [Concomitant]
     Route: 065
  4. PROSCAR [Concomitant]
     Active Substance: FINASTERIDE
     Route: 065
  5. VITAMINS [Concomitant]
     Active Substance: VITAMINS
     Route: 065

REACTIONS (4)
  - Gastrointestinal disorder [Unknown]
  - Abdominal pain [Unknown]
  - Therapy cessation [Unknown]
  - Off label use [Unknown]
